FAERS Safety Report 10363476 (Version 2)
Quarter: 2014Q3

REPORT INFORMATION
  Report Type: Spontaneous
  Country: CN (occurrence: CN)
  Receive Date: 20140805
  Receipt Date: 20140922
  Transmission Date: 20150326
  Serious: Yes (Other)
  Sender: FDA-Public Use
  Company Number: CN-VIIV HEALTHCARE LIMITED-B1020155A

PATIENT
  Age: 76 Year
  Sex: Male
  Weight: 51 kg

DRUGS (3)
  1. EFAVIRENZ [Concomitant]
     Active Substance: EFAVIRENZ
     Indication: HIV INFECTION
     Dates: start: 20131104
  2. LAMIVUDINE-HIV [Suspect]
     Active Substance: LAMIVUDINE
     Indication: HIV INFECTION
     Dosage: 300MG TWICE PER DAY
     Route: 048
     Dates: start: 20131104, end: 20131126
  3. TENOFOVIR [Concomitant]
     Active Substance: TENOFOVIR
     Indication: HIV INFECTION
     Dates: start: 20131104

REACTIONS (1)
  - Renal impairment [Recovering/Resolving]

NARRATIVE: CASE EVENT DATE: 20131112
